FAERS Safety Report 9264197 (Version 2)
Quarter: 2014Q3

REPORT INFORMATION
  Report Type: Report from Study
  Country: US (occurrence: US)
  Receive Date: 20130430
  Receipt Date: 20140730
  Transmission Date: 20150326
  Serious: No
  Sender: FDA-Public Use
  Company Number: US-VERTEX PHARMACEUTICALS INC-2013-005575

PATIENT
  Age: 25 Year
  Sex: Male

DRUGS (1)
  1. IVACAFTOR [Suspect]
     Active Substance: IVACAFTOR
     Indication: CYSTIC FIBROSIS
     Dosage: UNK
     Route: 048
     Dates: start: 20120412

REACTIONS (4)
  - Treatment noncompliance [Unknown]
  - Drug dose omission [Unknown]
  - Drug effect decreased [Unknown]
  - Malaise [Unknown]

NARRATIVE: CASE EVENT DATE: 20130101
